FAERS Safety Report 14121710 (Version 1)
Quarter: 2017Q4

REPORT INFORMATION
  Report Type: Spontaneous
  Country: GB (occurrence: GB)
  Receive Date: 20171024
  Receipt Date: 20171024
  Transmission Date: 20180321
  Serious: Yes (Other)
  Sender: FDA-Public Use
  Company Number: GB-BRISTOL-MYERS SQUIBB COMPANY-BMS-2017-093677

PATIENT
  Age: 48 Year
  Sex: Male

DRUGS (2)
  1. APIXABAN [Suspect]
     Active Substance: APIXABAN
     Indication: DEEP VEIN THROMBOSIS
     Dosage: 2.5 MG, UNK
     Route: 065
  2. APIXABAN [Suspect]
     Active Substance: APIXABAN
     Indication: CONGENITAL CYSTIC KIDNEY DISEASE
     Dosage: 5 MG, UNK
     Route: 065

REACTIONS (2)
  - Prescribed underdose [Unknown]
  - Renal impairment [Unknown]
